FAERS Safety Report 19182434 (Version 1)
Quarter: 2021Q2

REPORT INFORMATION
  Report Type: Report from Study
  Country: BR (occurrence: BR)
  Receive Date: 20210426
  Receipt Date: 20210426
  Transmission Date: 20210717
  Serious: Yes (Other)
  Sender: FDA-Public Use
  Company Number: NVSC2020BR288015

PATIENT
  Sex: Female

DRUGS (1)
  1. DIOVAN [Suspect]
     Active Substance: VALSARTAN
     Indication: HYPERTENSION
     Dosage: UNK
     Route: 065

REACTIONS (9)
  - Fall [Unknown]
  - Facial bones fracture [Unknown]
  - Feeling abnormal [Unknown]
  - Speech disorder [Unknown]
  - Blood pressure inadequately controlled [Not Recovered/Not Resolved]
  - Syncope [Unknown]
  - Blood pressure increased [Unknown]
  - Malaise [Unknown]
  - Hypotension [Unknown]
